FAERS Safety Report 13258631 (Version 2)
Quarter: 2017Q1

REPORT INFORMATION
  Report Type: Spontaneous
  Country: ID (occurrence: ID)
  Receive Date: 20170222
  Receipt Date: 20170228
  Transmission Date: 20170428
  Serious: Yes (Life-Threatening, Hospitalization, Disabling, Other)
  Sender: FDA-Public Use
  Company Number: ID-ASTRAZENECA-2017SE18086

PATIENT
  Age: 68 Year
  Sex: Male
  Weight: 65 kg

DRUGS (13)
  1. BRILINTA [Suspect]
     Active Substance: TICAGRELOR
     Indication: PERCUTANEOUS CORONARY INTERVENTION
     Dosage: 180 MG ONCE LOADING DOSE
     Route: 048
     Dates: start: 20170204, end: 20170204
  2. BRILINTA [Suspect]
     Active Substance: TICAGRELOR
     Indication: PERCUTANEOUS CORONARY INTERVENTION
     Route: 048
     Dates: start: 20170204, end: 20170208
  3. BRILINTA [Suspect]
     Active Substance: TICAGRELOR
     Indication: CORONARY ARTERY DISEASE
     Dosage: 180 MG ONCE LOADING DOSE
     Route: 048
     Dates: start: 20170204, end: 20170204
  4. ASCARDIA [Concomitant]
     Indication: PERCUTANEOUS CORONARY INTERVENTION
     Dosage: 320.0MG ONCE/SINGLE ADMINISTRATION
     Route: 048
     Dates: start: 20170201
  5. ASCARDIA [Concomitant]
     Indication: PERCUTANEOUS CORONARY INTERVENTION
     Dosage: 80.0MG ONCE/SINGLE ADMINISTRATION
     Route: 048
     Dates: start: 20170201, end: 20170208
  6. CASODEX [Concomitant]
     Active Substance: BICALUTAMIDE
     Dosage: 50.0MG UNKNOWN
     Dates: start: 20170206
  7. BISOPROLOL [Concomitant]
     Active Substance: BISOPROLOL
     Indication: CORONARY ARTERY DISEASE
     Route: 048
     Dates: start: 20170201
  8. PERINDOPRIL [Concomitant]
     Active Substance: PERINDOPRIL
     Indication: CORONARY ARTERY DISEASE
     Route: 048
     Dates: start: 20170201
  9. AZITHROMYCIN ANHYDROUS. [Concomitant]
     Active Substance: AZITHROMYCIN ANHYDROUS
     Route: 048
     Dates: start: 20170205
  10. BRILINTA [Suspect]
     Active Substance: TICAGRELOR
     Indication: CORONARY ARTERY DISEASE
     Route: 048
     Dates: start: 20170204, end: 20170208
  11. HEPARIN [Concomitant]
     Active Substance: HEPARIN SODIUM
     Indication: ANTICOAGULANT THERAPY
     Dosage: AS REQUIRED (GIVEN DURING PCI UNTIL TARGET ACT REACHED GREATER THAN 250 SECONDS)
     Route: 042
     Dates: start: 20170204, end: 20170204
  12. ESILGAN [Concomitant]
     Active Substance: ESTAZOLAM
     Dosage: 2.0MG AS REQUIRED
     Route: 048
     Dates: start: 20170207
  13. PROFENID [Concomitant]
     Active Substance: KETOPROFEN
     Dosage: AS REQUIRED
     Route: 054
     Dates: start: 20170206

REACTIONS (7)
  - Cerebral artery occlusion [Unknown]
  - Subarachnoid haemorrhage [Unknown]
  - Post procedural haematuria [Unknown]
  - Off label use [Unknown]
  - Device occlusion [Unknown]
  - Blood pressure increased [Unknown]
  - Product use issue [Unknown]

NARRATIVE: CASE EVENT DATE: 20170204
